FAERS Safety Report 24592046 (Version 1)
Quarter: 2024Q4

REPORT INFORMATION
  Report Type: Spontaneous
  Country: US (occurrence: US)
  Receive Date: 20241108
  Receipt Date: 20241108
  Transmission Date: 20250115
  Serious: No
  Sender: DAIICHI
  Company Number: US-DSJP-DS-2024-106324-US

PATIENT
  Sex: Female

DRUGS (2)
  1. SAVAYSA [Suspect]
     Active Substance: EDOXABAN TOSYLATE
     Indication: Atrial fibrillation
     Dosage: 60 MG
     Route: 065
  2. SAVAYSA [Suspect]
     Active Substance: EDOXABAN TOSYLATE
     Dosage: 30 MG, QD
     Route: 065

REACTIONS (7)
  - Skin discolouration [Not Recovered/Not Resolved]
  - Insomnia [Unknown]
  - Product use issue [Not Recovered/Not Resolved]
  - Off label use [Unknown]
  - Somnolence [Unknown]
  - Hepatic enzyme increased [Unknown]
  - Haemorrhage [Unknown]

NARRATIVE: CASE EVENT DATE: 20240101
